FAERS Safety Report 21855428 (Version 2)
Quarter: 2023Q1

REPORT INFORMATION
  Report Type: Spontaneous
  Country: US (occurrence: None)
  Receive Date: 20230112
  Receipt Date: 20230127
  Transmission Date: 20230418
  Serious: Yes (Other)
  Sender: FDA-Public Use
  Company Number: US-ROCHE-3261023

PATIENT
  Age: 46 Year
  Sex: Female
  Weight: 67.646 kg

DRUGS (6)
  1. KADCYLA [Suspect]
     Active Substance: ADO-TRASTUZUMAB EMTANSINE
     Indication: HER2 positive breast cancer
     Dosage: RECEIVED 8 TREATMENTS, HAS 6 TREATMENTS REMAINING ;ONGOING: YES
     Route: 042
     Dates: start: 20220719
  2. HERCEPTIN [Suspect]
     Active Substance: TRASTUZUMAB
     Indication: HER2 positive breast cancer
     Dosage: RECEIVED TWO TREATMENTS ;ONGOING: NO
     Route: 042
     Dates: start: 20220607, end: 20220628
  3. PERJETA [Suspect]
     Active Substance: PERTUZUMAB
     Indication: HER2 positive breast cancer
     Dosage: RECEIVED TWO TREATMENTS ;ONGOING: NO
     Route: 042
     Dates: start: 20220607, end: 20220628
  4. NEXIUM [Concomitant]
     Active Substance: ESOMEPRAZOLE MAGNESIUM
     Indication: Gastrooesophageal reflux disease
     Route: 048
  5. APRI [Concomitant]
     Active Substance: DESOGESTREL\ETHINYL ESTRADIOL
     Indication: Contraception
  6. CLARITIN [Concomitant]
     Active Substance: LORATADINE
     Indication: Arthralgia
     Route: 048
     Dates: start: 20220201

REACTIONS (7)
  - Pneumonia [Recovered/Resolved]
  - Neuropathy peripheral [Not Recovered/Not Resolved]
  - Arthralgia [Not Recovered/Not Resolved]
  - Pain [Unknown]
  - Scratch [Not Recovered/Not Resolved]
  - Gait disturbance [Not Recovered/Not Resolved]
  - Pain in extremity [Unknown]

NARRATIVE: CASE EVENT DATE: 20220801
